FAERS Safety Report 19780134 (Version 1)
Quarter: 2021Q3

REPORT INFORMATION
  Report Type: Spontaneous
  Country: AU (occurrence: AU)
  Receive Date: 20210902
  Receipt Date: 20210902
  Transmission Date: 20211014
  Serious: Yes (Hospitalization, Other)
  Sender: FDA-Public Use
  Company Number: AU-PFIZER INC-202101076211

PATIENT
  Age: 71 Year
  Sex: Female

DRUGS (1)
  1. DBL ZOLEDRONIC ACID [Suspect]
     Active Substance: ZOLEDRONIC ACID
     Dosage: UNK
     Dates: start: 20210804

REACTIONS (9)
  - Syncope [Unknown]
  - Multiple fractures [Unknown]
  - Blood pressure decreased [Unknown]
  - Renal impairment [Unknown]
  - Pain [Not Recovered/Not Resolved]
  - Pyrexia [Unknown]
  - Blindness [Unknown]
  - Chest discomfort [Unknown]
  - Eye colour change [Recovered/Resolved]

NARRATIVE: CASE EVENT DATE: 20210804
